FAERS Safety Report 17823096 (Version 4)
Quarter: 2020Q3

REPORT INFORMATION
  Report Type: Report from Study
  Country: US (occurrence: US)
  Receive Date: 20200526
  Receipt Date: 20200730
  Transmission Date: 20201102
  Serious: Yes (Hospitalization, Other)
  Sender: FDA-Public Use
  Company Number: NVSC2020US120186

PATIENT
  Age: 19 Year
  Sex: Female
  Weight: 59.8 kg

DRUGS (12)
  1. TRAMETINIB [Suspect]
     Active Substance: TRAMETINIB
     Indication: MALIGNANT MELANOMA
     Dosage: 30 MG
     Route: 048
     Dates: start: 20200303, end: 20200419
  2. TRAMETINIB [Suspect]
     Active Substance: TRAMETINIB
     Dosage: 27 MG
     Route: 048
     Dates: start: 20200514
  3. COMPARATOR HYDROXYCHLOROQUINE SULFATE [Suspect]
     Active Substance: HYDROXYCHLOROQUINE SULFATE
     Dosage: 8750 MG
     Route: 048
     Dates: start: 20200514
  4. COMPARATOR HYDROXYCHLOROQUINE SULFATE [Suspect]
     Active Substance: HYDROXYCHLOROQUINE SULFATE
     Dosage: 11475 MG
     Route: 048
     Dates: end: 20200522
  5. COMPARATOR HYDROXYCHLOROQUINE SULFATE [Suspect]
     Active Substance: HYDROXYCHLOROQUINE SULFATE
     Indication: MALIGNANT MELANOMA
     Dosage: 1000 MG
     Route: 048
     Dates: start: 20200303, end: 20200419
  6. BEVACIZUMAB. [Concomitant]
     Active Substance: BEVACIZUMAB
     Dosage: UNK
     Route: 065
     Dates: start: 20180716
  7. MEGESTROL [Concomitant]
     Active Substance: MEGESTROL
     Indication: PRODUCT USED FOR UNKNOWN INDICATION
     Dosage: UNK
     Route: 065
     Dates: end: 20200530
  8. COMPARATOR HYDROXYCHLOROQUINE SULFATE [Suspect]
     Active Substance: HYDROXYCHLOROQUINE SULFATE
     Dosage: UNK
     Route: 048
     Dates: end: 20200708
  9. TRAMETINIB [Suspect]
     Active Substance: TRAMETINIB
     Dosage: 39 MG
     Route: 048
     Dates: end: 20200522
  10. TRAMETINIB [Suspect]
     Active Substance: TRAMETINIB
     Dosage: UNK
     Route: 048
     Dates: end: 20200708
  11. DEXAMETHASONE. [Concomitant]
     Active Substance: DEXAMETHASONE
     Indication: PRODUCT USED FOR UNKNOWN INDICATION
     Dosage: 1 MG
     Route: 065
     Dates: start: 20200716
  12. BEVACIZUMAB. [Concomitant]
     Active Substance: BEVACIZUMAB
     Indication: CHEMOTHERAPY SINGLE AGENT SYSTEMIC
     Dosage: UNK
     Route: 065
     Dates: start: 201805, end: 201811

REACTIONS (6)
  - Ejection fraction decreased [Unknown]
  - Decreased appetite [Unknown]
  - Ataxia [Unknown]
  - Fatigue [Unknown]
  - Memory impairment [Unknown]
  - Seizure [Recovered/Resolved]

NARRATIVE: CASE EVENT DATE: 20200420
